FAERS Safety Report 5631941-5 (Version None)
Quarter: 2008Q1

REPORT INFORMATION
  Report Type: 
  Country: None (occurrence: None)
  Receive Date: 20080220
  Receipt Date: 20080206
  Transmission Date: 20080703
  Serious: Yes (Hospitalization)
  Sender: FDA-Public Use
  Company Number: JP-ELI_LILLY_AND_COMPANY-JP200607005169

PATIENT
  Sex: Female
  Weight: 44.5 kg

DRUGS (2)
  1. RALOXIFENE HYDROCHLORIDE [Suspect]
     Indication: OSTEOPOROSIS POSTMENOPAUSAL
     Dosage: 60 MG, DAILY (1/D)
     Route: 048
     Dates: start: 20050120, end: 20060919
  2. D ALFA [Concomitant]
     Indication: OSTEOPOROSIS POSTMENOPAUSAL
     Dosage: 1 UG, DAILY (1/D)
     Route: 048
     Dates: start: 20040301, end: 20060919

REACTIONS (5)
  - ASTHMA [None]
  - PELVIC FRACTURE [None]
  - RIB FRACTURE [None]
  - SPINAL COMPRESSION FRACTURE [None]
  - STERNAL FRACTURE [None]
